FAERS Safety Report 24051548 (Version 6)
Quarter: 2024Q4

REPORT INFORMATION
  Report Type: Spontaneous
  Country: US (occurrence: US)
  Receive Date: 20240704
  Receipt Date: 20241126
  Transmission Date: 20250115
  Serious: No
  Sender: PFIZER
  Company Number: US-PFIZER INC-PV202400087101

PATIENT
  Age: 73 Year
  Sex: Female

DRUGS (3)
  1. TUKYSA [Suspect]
     Active Substance: TUCATINIB
     Dosage: 1 TABLET EVERY 12 HOURS/1 TABLET IN THE MORNING AND 1 TABLET IN THE EVENING
  2. TUKYSA [Suspect]
     Active Substance: TUCATINIB
     Dosage: 150MG 2 TABLETS EVERY 12 HOURS
  3. TUKYSA [Suspect]
     Active Substance: TUCATINIB
     Dosage: 250 MG, 2X/DAY (50MG TABLETS, TAKE 5 TABLETS ORALLY EVERY 12 HOURS WITH OR WITHOUT FOOD) (50MG TAKE
     Route: 048

REACTIONS (2)
  - Nausea [Recovered/Resolved]
  - Diarrhoea [Unknown]
